FAERS Safety Report 4375547-7 (Version None)
Quarter: 2004Q2

REPORT INFORMATION
  Report Type: 
  Country: None (occurrence: None)
  Receive Date: 20040610
  Receipt Date: 20040602
  Transmission Date: 20050107
  Serious: Yes (Death, Hospitalization)
  Sender: FDA-Public Use
  Company Number: GB-JNJFOC-20040600690

PATIENT
  Age: 75 Year
  Sex: Female

DRUGS (3)
  1. REMICADE [Suspect]
     Indication: MUSCULOSKELETAL PAIN
     Route: 042
  2. IMURAN [Interacting]
     Indication: MUSCULOSKELETAL PAIN
     Route: 065
  3. PREDNISOLONE [Concomitant]

REACTIONS (5)
  - ALVEOLITIS FIBROSING [None]
  - CONDITION AGGRAVATED [None]
  - DRUG INTERACTION [None]
  - LUNG DISORDER [None]
  - TACHYPNOEA [None]
